FAERS Safety Report 23929974 (Version 1)
Quarter: 2024Q2

REPORT INFORMATION
  Report Type: Report from Study
  Country: US (occurrence: US)
  Receive Date: 20240601
  Receipt Date: 20240601
  Transmission Date: 20240715
  Serious: Yes (Hospitalization, Other)
  Sender: FDA-Public Use
  Company Number: US-ABBVIE-5576809

PATIENT
  Sex: Female

DRUGS (4)
  1. HUMIRA [Suspect]
     Active Substance: ADALIMUMAB
     Indication: Psoriatic arthropathy
     Dosage: FORM STRENGTH: 40MG CITRATE FREE
     Route: 058
     Dates: end: 202311
  2. HUMIRA [Suspect]
     Active Substance: ADALIMUMAB
     Dosage: FORM STRENGTH: 40MG CITRATE FREE
     Route: 058
     Dates: end: 202311
  3. HUMIRA [Suspect]
     Active Substance: ADALIMUMAB
     Dosage: FORM STRENGTH: 40MG CITRATE FREE
     Route: 058
     Dates: start: 2004
  4. METFORMIN [Suspect]
     Active Substance: METFORMIN HYDROCHLORIDE
     Indication: Type 1 diabetes mellitus
     Route: 065

REACTIONS (18)
  - Coronary artery occlusion [Recovered/Resolved with Sequelae]
  - Hospitalisation [Recovered/Resolved]
  - Psoriatic arthropathy [Recovering/Resolving]
  - Coronary artery occlusion [Recovered/Resolved with Sequelae]
  - Myocardial infarction [Recovered/Resolved]
  - Glycosylated haemoglobin increased [Not Recovered/Not Resolved]
  - Type 1 diabetes mellitus [Not Recovered/Not Resolved]
  - Obstruction [Recovered/Resolved with Sequelae]
  - Off label use [Recovering/Resolving]
  - Coronary artery occlusion [Unknown]
  - Illness [Unknown]
  - Musculoskeletal disorder [Unknown]
  - Dyspnoea [Unknown]
  - Hypoaesthesia [Unknown]
  - Musculoskeletal disorder [Unknown]
  - Therapeutic product effect incomplete [Unknown]
  - Coronary artery disease [Unknown]
  - Nerve compression [Unknown]

NARRATIVE: CASE EVENT DATE: 20120101
